FAERS Safety Report 12738312 (Version 1)
Quarter: 2016Q3

REPORT INFORMATION
  Report Type: Spontaneous
  Country: US (occurrence: US)
  Receive Date: 20160912
  Receipt Date: 20160912
  Transmission Date: 20161109
  Serious: Yes (Life-Threatening, Hospitalization)
  Sender: FDA-Public Use
  Company Number: None

PATIENT
  Age: 61 Year
  Sex: Female
  Weight: 55.3 kg

DRUGS (8)
  1. EVOLOCUMAB [Concomitant]
     Active Substance: EVOLOCUMAB
  2. TOPIRAMATE. [Concomitant]
     Active Substance: TOPIRAMATE
  3. LAMOTRIGINE. [Suspect]
     Active Substance: LAMOTRIGINE
     Indication: AFFECTIVE DISORDER
     Route: 048
  4. ALBUTEROL. [Concomitant]
     Active Substance: ALBUTEROL
  5. ATORVASTATIN [Concomitant]
     Active Substance: ATORVASTATIN
  6. RANITIDINE. [Concomitant]
     Active Substance: RANITIDINE
  7. SPIRIVA [Concomitant]
     Active Substance: TIOTROPIUM BROMIDE MONOHYDRATE
  8. SYMBICORT [Concomitant]
     Active Substance: BUDESONIDE\FORMOTEROL FUMARATE DIHYDRATE

REACTIONS (13)
  - Arthralgia [None]
  - Hepatic cyst [None]
  - Bladder dilatation [None]
  - Hepatic steatosis [None]
  - Pyrexia [None]
  - Pleural effusion [None]
  - Myalgia [None]
  - Nausea [None]
  - Atelectasis [None]
  - Chills [None]
  - Vomiting [None]
  - Meningitis aseptic [None]
  - Interstitial lung disease [None]

NARRATIVE: CASE EVENT DATE: 20160905
